FAERS Safety Report 8198862-8 (Version None)
Quarter: 2012Q1

REPORT INFORMATION
  Report Type: 
  Country: None (occurrence: None)
  Receive Date: 20120309
  Receipt Date: 20120227
  Transmission Date: 20120608
  Serious: No
  Sender: FDA-Public Use
  Company Number: US-B.I. PHARMACEUTICALS,INC./RIDGEFIELD-2012-BP-03727BP

PATIENT
  Sex: Female

DRUGS (9)
  1. MICARDIS [Suspect]
     Indication: HYPERTENSION
     Dosage: 40 MG
     Route: 048
     Dates: start: 20120101, end: 20120201
  2. PREDNISONE TAB [Concomitant]
     Route: 048
     Dates: start: 19910101
  3. XANAX [Concomitant]
     Indication: ANXIETY
  4. LEVOTHYROXINE SODIUM [Concomitant]
     Indication: HYPOTHYROIDISM
     Dosage: 0.25 MG
     Route: 048
  5. MICARDIS [Suspect]
     Dosage: 40 MG
     Route: 048
     Dates: start: 20120220, end: 20120227
  6. POTASSIUM [Concomitant]
     Indication: ELECTROLYTE SUBSTITUTION THERAPY
     Route: 048
  7. VITAMIN B-12 [Concomitant]
     Indication: PROPHYLAXIS
     Route: 048
  8. LASIX [Concomitant]
     Indication: HYPERTENSION
  9. CALCIUM [Concomitant]
     Indication: PROPHYLAXIS
     Route: 048

REACTIONS (6)
  - EYE PRURITUS [None]
  - OXYGEN CONSUMPTION [None]
  - HYPERSENSITIVITY [None]
  - PAIN IN EXTREMITY [None]
  - SINUS DISORDER [None]
  - STOMATITIS [None]
